FAERS Safety Report 6721593-5 (Version None)
Quarter: 2010Q2

REPORT INFORMATION
  Report Type: 
  Country: None (occurrence: None)
  Receive Date: 20100512
  Receipt Date: 20100428
  Transmission Date: 20101027
  Serious: Yes (Hospitalization)
  Sender: FDA-Public Use
  Company Number: PHHY2010MX27433

PATIENT
  Age: 66 Year
  Sex: Female

DRUGS (1)
  1. DIOVAN [Suspect]
     Indication: HYPERTENSION
     Dosage: 2 TABLETS (160 MG) DAILY
     Route: 048
     Dates: start: 20050801

REACTIONS (2)
  - BONE EROSION [None]
  - SPINAL OPERATION [None]
